FAERS Safety Report 14137965 (Version 1)
Quarter: 2017Q4

REPORT INFORMATION
  Report Type: Spontaneous
  Country: US (occurrence: US)
  Receive Date: 20171027
  Receipt Date: 20171027
  Transmission Date: 20180321
  Serious: No
  Sender: FDA-Public Use
  Company Number: PHEH2017US034371

PATIENT
  Sex: Female

DRUGS (1)
  1. GLEEVEC [Suspect]
     Active Substance: IMATINIB MESYLATE
     Indication: PRODUCT USED FOR UNKNOWN INDICATION
     Dosage: 100 MG DOSE IN THE MORNING AND 200 MG IN THE EVENING
     Route: 065

REACTIONS (5)
  - Pruritus [Unknown]
  - Fatigue [Unknown]
  - General physical health deterioration [Unknown]
  - Cardiac disorder [Unknown]
  - Oedema [Unknown]
